FAERS Safety Report 9803036 (Version 2)
Quarter: 2014Q1

REPORT INFORMATION
  Report Type: Spontaneous
  Country: IT (occurrence: IT)
  Receive Date: 20140108
  Receipt Date: 20140203
  Transmission Date: 20141002
  Serious: Yes (Other)
  Sender: FDA-Public Use
  Company Number: IT-JNJFOC-20140102425

PATIENT
  Age: 46 Year
  Sex: Female
  Weight: 60 kg

DRUGS (4)
  1. TOPAMAX [Suspect]
     Indication: HEADACHE
     Route: 048
     Dates: start: 20140103, end: 20140103
  2. TOPAMAX [Suspect]
     Indication: HEADACHE
     Route: 048
  3. TOPAMAX [Suspect]
     Indication: PRODUCT USED FOR UNKNOWN INDICATION
     Route: 048
     Dates: start: 20140103, end: 20140103
  4. TOPAMAX [Suspect]
     Indication: PRODUCT USED FOR UNKNOWN INDICATION
     Route: 048

REACTIONS (6)
  - Self injurious behaviour [Unknown]
  - Intentional overdose [Unknown]
  - Vertigo [Recovered/Resolved]
  - Paraesthesia [Recovered/Resolved]
  - Nausea [Recovered/Resolved]
  - Acidosis hyperchloraemic [Unknown]
